FAERS Safety Report 18751395 (Version 1)
Quarter: 2021Q1

REPORT INFORMATION
  Report Type: Spontaneous
  Country: IT (occurrence: IT)
  Receive Date: 20210118
  Receipt Date: 20210118
  Transmission Date: 20210419
  Serious: Yes (Other)
  Sender: FDA-Public Use
  Company Number: IT-PFIZER INC-2020472330

PATIENT
  Age: 39 Year
  Sex: Female

DRUGS (2)
  1. REBIF [Suspect]
     Active Substance: INTERFERON BETA-1A
     Indication: MULTIPLE SCLEROSIS
     Dosage: 12 MIU, CYCLIC (3 TIMES/WEEK)
     Route: 058
  2. ZOLOFT [Suspect]
     Active Substance: SERTRALINE HYDROCHLORIDE
     Indication: DEPRESSION
     Dosage: 100 MG, 1X/DAY
     Route: 048

REACTIONS (6)
  - Pyrexia [Unknown]
  - Influenza [Unknown]
  - Cough [Unknown]
  - Anosmia [Unknown]
  - SARS-CoV-2 test positive [Unknown]
  - Myalgia [Unknown]

NARRATIVE: CASE EVENT DATE: 20201109
